FAERS Safety Report 6886438-1 (Version None)
Quarter: 2010Q3

REPORT INFORMATION
  Report Type: 
  Country: None (occurrence: None)
  Receive Date: 20100729
  Receipt Date: 20090616
  Transmission Date: 20110219
  Serious: No
  Sender: FDA-Public Use
  Company Number: US-PFIZER INC-2009205635

PATIENT
  Age: 62 Year
  Sex: Female

DRUGS (3)
  1. CELEBREX [Suspect]
     Indication: FIBROMYALGIA
     Dosage: UNK
     Dates: start: 20080601
  2. LYRICA [Suspect]
     Indication: FIBROMYALGIA
     Dosage: UNK
     Dates: start: 20080601
  3. CELEXA [Concomitant]
     Indication: BIPOLAR DISORDER

REACTIONS (1)
  - DRY MOUTH [None]
